FAERS Safety Report 4787469-8 (Version None)
Quarter: 2005Q4

REPORT INFORMATION
  Report Type: 
  Country: None (occurrence: None)
  Receive Date: 20051004
  Receipt Date: 20050922
  Transmission Date: 20060501
  Serious: Yes (Hospitalization)
  Sender: FDA-Public Use
  Company Number: FR-SANOFI-SYNTHELABO-A02200502478

PATIENT
  Age: 86 Year
  Sex: Female

DRUGS (6)
  1. STILNOX [Suspect]
     Indication: DRUG USE FOR UNKNOWN INDICATION
     Route: 048
     Dates: end: 20050418
  2. RISPERDAL [Suspect]
     Indication: DRUG USE FOR UNKNOWN INDICATION
     Dosage: 0.3 MG
     Route: 048
     Dates: end: 20050418
  3. LYSANXIA [Suspect]
     Indication: DRUG USE FOR UNKNOWN INDICATION
     Dosage: 30 MG
     Route: 048
     Dates: end: 20050418
  4. CORDARONE [Concomitant]
     Route: 048
  5. CITALOPRAM HYDROBROMIDE [Concomitant]
     Route: 048
  6. EXELON [Concomitant]
     Dosage: 2 DF
     Route: 048

REACTIONS (6)
  - AKINESIA [None]
  - ARTHROPATHY [None]
  - DISORIENTATION [None]
  - FACIAL BONES FRACTURE [None]
  - FALL [None]
  - INJURY [None]
